FAERS Safety Report 10237999 (Version 1)
Quarter: 2014Q2

REPORT INFORMATION
  Report Type: Spontaneous
  Country: US (occurrence: US)
  Receive Date: 20140616
  Receipt Date: 20140616
  Transmission Date: 20141212
  Serious: No
  Sender: FDA-Public Use
  Company Number: US-BIOGENIDEC-2014BI053009

PATIENT
  Age: 55 Year
  Sex: Female

DRUGS (7)
  1. TECFIDERA [Suspect]
     Indication: MULTIPLE SCLEROSIS
     Route: 048
     Dates: start: 20140227
  2. CALCIUM-MAGNESIUM-ZINC [Concomitant]
  3. STRONTIUM CHLORIDE [Concomitant]
  4. OLANZAPINE [Concomitant]
  5. LITHIUM CARBONATE [Concomitant]
  6. VITAMIN D [Concomitant]
  7. VITAMIN C [Concomitant]

REACTIONS (1)
  - Alopecia [Unknown]
